FAERS Safety Report 4430169-4 (Version None)
Quarter: 2004Q3

REPORT INFORMATION
  Report Type: 
  Country: None (occurrence: None)
  Receive Date: 20040817
  Receipt Date: 20040806
  Transmission Date: 20050211
  Serious: Yes (Other)
  Sender: FDA-Public Use
  Company Number: STA-AE-04-MTX-353

PATIENT
  Age: 28 Year
  Sex: Female

DRUGS (2)
  1. METHOTREXATE [Suspect]
     Indication: MULTIPLE SCLEROSIS
     Dosage: 500 MG
  2. NOVANTRONE [Suspect]
     Indication: MULTIPLE SCLEROSIS
     Dosage: TOTAL DOSE OF 120 MG

REACTIONS (1)
  - ACUTE PROMYELOCYTIC LEUKAEMIA [None]
